FAERS Safety Report 8508123-2 (Version None)
Quarter: 2012Q3

REPORT INFORMATION
  Report Type: 
  Country: None (occurrence: None)
  Receive Date: 20120713
  Receipt Date: 20120702
  Transmission Date: 20120928
  Serious: Yes (Hospitalization)
  Sender: FDA-Public Use
  Company Number: US-BIOGENIDEC-2008BI011231

PATIENT
  Age: 42 Year
  Sex: Female
  Weight: 45 kg

DRUGS (3)
  1. AVONEX [Suspect]
     Indication: MULTIPLE SCLEROSIS
     Route: 030
     Dates: start: 20080125, end: 20080502
  2. ACETAMINOPHEN [Concomitant]
     Indication: PREMEDICATION
  3. IBUPROFEN (ADVIL) [Concomitant]
     Indication: PREMEDICATION

REACTIONS (12)
  - VOMITING [None]
  - MUSCLE SPASMS [None]
  - DIZZINESS [None]
  - VITAMIN D DECREASED [None]
  - MULTIPLE SCLEROSIS [None]
  - URINARY INCONTINENCE [None]
  - INFLUENZA LIKE ILLNESS [None]
  - IMMUNE SYSTEM DISORDER [None]
  - HYPOAESTHESIA [None]
  - NAUSEA [None]
  - MULTIPLE SCLEROSIS RELAPSE [None]
  - FEELING HOT [None]
